FAERS Safety Report 6184437-9 (Version None)
Quarter: 2009Q2

REPORT INFORMATION
  Report Type: 
  Country: None (occurrence: None)
  Receive Date: 20090507
  Receipt Date: 20090507
  Transmission Date: 20091009
  Serious: Yes (Hospitalization, Disabling)
  Sender: FDA-Public Use
  Company Number: None

PATIENT
  Sex: Female
  Weight: 80.7403 kg

DRUGS (1)
  1. LEVAQUIN [Suspect]
     Indication: PNEUMONIA
     Dosage: ONE 500 MG DAILY FOR 10 DAYS
     Dates: start: 20090203, end: 20090210

REACTIONS (5)
  - ACTIVITIES OF DAILY LIVING IMPAIRED [None]
  - ARTHRITIS [None]
  - GRIP STRENGTH DECREASED [None]
  - MOBILITY DECREASED [None]
  - TENDONITIS [None]
